FAERS Safety Report 24176635 (Version 1)
Quarter: 2024Q3

REPORT INFORMATION
  Report Type: Spontaneous
  Country: CN (occurrence: CN)
  Receive Date: 20240806
  Receipt Date: 20240806
  Transmission Date: 20241016
  Serious: Yes (Other)
  Sender: Chengdu Suncadia Medicine
  Company Number: CN-Chengdu Suncadia Medicine Co., Ltd.-2160039

PATIENT
  Weight: 1.93 kg

DRUGS (3)
  1. TACROLIMUS EXTENDED-RELEASE CAPSULES [Suspect]
     Active Substance: TACROLIMUS
     Indication: Product used for unknown indication
     Route: 064
  2. MIZORIBINE [Suspect]
     Active Substance: MIZORIBINE
     Route: 064
  3. METHYLPREDNISOLONE [Suspect]
     Active Substance: METHYLPREDNISOLONE
     Route: 064

REACTIONS (2)
  - Premature baby [Recovered/Resolved]
  - Foetal exposure during pregnancy [Recovered/Resolved]
